FAERS Safety Report 21814913 (Version 1)
Quarter: 2023Q1

REPORT INFORMATION
  Report Type: Spontaneous
  Country: US (occurrence: US)
  Receive Date: 20230104
  Receipt Date: 20230104
  Transmission Date: 20230417
  Serious: No
  Sender: FDA-Public Use
  Company Number: US-ARGENX-2022-ARGX-US002453

PATIENT

DRUGS (2)
  1. VYVGART [Suspect]
     Active Substance: EFGARTIGIMOD ALFA-FCAB
     Indication: Myasthenia gravis
  2. SOLIRIS [Concomitant]
     Active Substance: ECULIZUMAB
     Indication: Myasthenia gravis

REACTIONS (7)
  - Gastrointestinal tract irritation [Unknown]
  - Malaise [Unknown]
  - Eyelid ptosis [Unknown]
  - Asthenia [Unknown]
  - Back pain [Unknown]
  - Dyspnoea [Unknown]
  - Influenza like illness [Unknown]
